FAERS Safety Report 13258276 (Version 1)
Quarter: 2017Q1

REPORT INFORMATION
  Report Type: Spontaneous
  Country: JP (occurrence: JP)
  Receive Date: 20170221
  Receipt Date: 20170221
  Transmission Date: 20170428
  Serious: Yes (Death, Other)
  Sender: FDA-Public Use
  Company Number: JP-AMGEN-JPNSP2017026010

PATIENT
  Age: 66 Year
  Sex: Female

DRUGS (8)
  1. CERCINE [Concomitant]
     Active Substance: DIAZEPAM
     Dosage: UNK
  2. PARSABIV [Suspect]
     Active Substance: ETELCALCETIDE HYDROCHLORIDE
     Dosage: 5 MG, QD
     Route: 042
     Dates: start: 20170203, end: 20170203
  3. GASTER [Concomitant]
     Active Substance: FAMOTIDINE
     Dosage: UNK
  4. CARVEDILOL. [Concomitant]
     Active Substance: CARVEDILOL
     Dosage: UNK
  5. PLAVIX [Concomitant]
     Active Substance: CLOPIDOGREL BISULFATE
     Dosage: UNK
  6. PARSABIV [Suspect]
     Active Substance: ETELCALCETIDE HYDROCHLORIDE
     Indication: HYPERPARATHYROIDISM SECONDARY
     Dosage: 5 MG, QD
     Route: 042
     Dates: start: 20170201, end: 20170203
  7. TEGRETOL [Concomitant]
     Active Substance: CARBAMAZEPINE
     Dosage: UNK
  8. KIKLIN [Concomitant]
     Active Substance: BIXALOMER
     Dosage: UNK

REACTIONS (1)
  - Ventricular fibrillation [Fatal]

NARRATIVE: CASE EVENT DATE: 20170205
